FAERS Safety Report 10210043 (Version 6)
Quarter: 2014Q3

REPORT INFORMATION
  Report Type: Spontaneous
  Country: US (occurrence: US)
  Receive Date: 20140602
  Receipt Date: 20140728
  Transmission Date: 20150326
  Serious: Yes (Life-Threatening, Hospitalization, Other)
  Sender: FDA-Public Use
  Company Number: US-JNJFOC-20140517571

PATIENT
  Sex: Female
  Weight: 91.4 kg

DRUGS (14)
  1. PROPRANOLOL [Concomitant]
     Active Substance: PROPRANOLOL\PROPRANOLOL HYDROCHLORIDE
     Route: 048
  2. OMEPRAZOLE. [Concomitant]
     Active Substance: OMEPRAZOLE
     Route: 065
  3. METHIMAZOLE. [Concomitant]
     Active Substance: METHIMAZOLE
     Route: 048
  4. XARELTO [Suspect]
     Active Substance: RIVAROXABAN
     Indication: CEREBROVASCULAR ACCIDENT PROPHYLAXIS
     Dosage: 1 TABLET AT DINNER
     Route: 048
     Dates: start: 20130913, end: 201311
  5. XARELTO [Suspect]
     Active Substance: RIVAROXABAN
     Indication: ATRIAL FIBRILLATION
     Dosage: 1 TABLET AT DINNER
     Route: 048
     Dates: start: 20130913, end: 201311
  6. VITAMIN C [Concomitant]
     Active Substance: ASCORBIC ACID
     Route: 048
  7. MOTRIN IB [Suspect]
     Active Substance: IBUPROFEN
     Indication: PRODUCT USED FOR UNKNOWN INDICATION
     Route: 065
  8. COUMADIN [Suspect]
     Active Substance: WARFARIN SODIUM
     Indication: PRODUCT USED FOR UNKNOWN INDICATION
     Route: 065
  9. LOPRESSOR [Suspect]
     Active Substance: METOPROLOL TARTRATE
     Indication: PRODUCT USED FOR UNKNOWN INDICATION
     Route: 048
  10. ASPIRIN. [Suspect]
     Active Substance: ASPIRIN
     Indication: PRODUCT USED FOR UNKNOWN INDICATION
     Route: 048
  11. TYLENOL [Concomitant]
     Active Substance: ACETAMINOPHEN
     Route: 065
  12. LOPRESSOR [Suspect]
     Active Substance: METOPROLOL TARTRATE
     Indication: PRODUCT USED FOR UNKNOWN INDICATION
     Route: 048
  13. VITAMIN C [Concomitant]
     Active Substance: ASCORBIC ACID
     Route: 048
  14. LOPRESSOR [Suspect]
     Active Substance: METOPROLOL TARTRATE
     Indication: PRODUCT USED FOR UNKNOWN INDICATION
     Route: 048

REACTIONS (6)
  - Nausea [Recovering/Resolving]
  - Anaemia [Recovering/Resolving]
  - Hypotension [Recovering/Resolving]
  - Gastric ulcer haemorrhage [Recovering/Resolving]
  - Vomiting [Recovered/Resolved]
  - Decreased appetite [Recovering/Resolving]
